FAERS Safety Report 10236156 (Version 2)
Quarter: 2014Q4

REPORT INFORMATION
  Report Type: Spontaneous
  Country: DK (occurrence: FR)
  Receive Date: 20140613
  Receipt Date: 20141124
  Transmission Date: 20150528
  Serious: No
  Sender: FDA-Public Use
  Company Number: FR-FRI-1000068089

PATIENT
  Sex: Female
  Weight: 62 kg

DRUGS (2)
  1. ESCITALOPRAM [Suspect]
     Active Substance: ESCITALOPRAM OXALATE
     Indication: DEPRESSION
     Dosage: 5 MG
     Route: 048
     Dates: start: 2012
  2. ESCITALOPRAM [Suspect]
     Active Substance: ESCITALOPRAM OXALATE
     Indication: ANXIETY
     Dosage: 10 MG
     Route: 048

REACTIONS (4)
  - Headache [Unknown]
  - Nausea [Unknown]
  - Sinusitis [Unknown]
  - Drug ineffective [Unknown]
